FAERS Safety Report 23908411 (Version 1)
Quarter: 2024Q2

REPORT INFORMATION
  Report Type: Spontaneous
  Country: CA (occurrence: CA)
  Receive Date: 20240528
  Receipt Date: 20240528
  Transmission Date: 20240716
  Serious: Yes (Death, Hospitalization, Other)
  Sender: FDA-Public Use
  Company Number: CA-FreseniusKabi-FK202408069

PATIENT
  Age: 95 Year
  Sex: Female
  Weight: 39 kg

DRUGS (3)
  1. AMIODARONE [Suspect]
     Active Substance: AMIODARONE
     Indication: Arrhythmia
     Dosage: FORM: NOT SPECIFIED
  2. DIGOXIN [Concomitant]
     Active Substance: DIGOXIN
     Indication: Product used for unknown indication
     Dosage: FORM: NOT SPECIFIED
  3. UNSPECIFIED INGREDIENT [Concomitant]
     Active Substance: UNSPECIFIED INGREDIENT
     Indication: Product used for unknown indication
     Dosage: FORM: NOT SPECIFIED

REACTIONS (10)
  - Aphasia [Fatal]
  - Chest pain [Fatal]
  - Constipation [Fatal]
  - Contusion [Fatal]
  - Creatinine renal clearance increased [Fatal]
  - Dysstasia [Fatal]
  - Gastrointestinal haemorrhage [Fatal]
  - Malaise [Fatal]
  - Nausea [Fatal]
  - Pupillary disorder [Fatal]
